FAERS Safety Report 24533328 (Version 1)
Quarter: 2024Q4

REPORT INFORMATION
  Report Type: Spontaneous
  Country: FR (occurrence: FR)
  Receive Date: 20241022
  Receipt Date: 20241022
  Transmission Date: 20250115
  Serious: Yes (Death, Other)
  Sender: Teyro Labs
  Company Number: FR-TEYRO-2024-TY-000782

PATIENT

DRUGS (2)
  1. GEMCITABINE [Suspect]
     Active Substance: GEMCITABINE
     Indication: Cholangiocarcinoma
     Dosage: UNKNOWN
     Route: 065
  2. ECULIZUMAB [Suspect]
     Active Substance: ECULIZUMAB
     Indication: Cholangiocarcinoma
     Dosage: 900 MG IV PER WEEK
     Route: 042

REACTIONS (3)
  - Neoplasm progression [Fatal]
  - Thrombotic microangiopathy [Unknown]
  - Off label use [Unknown]
